FAERS Safety Report 6302488-8 (Version None)
Quarter: 2009Q3

REPORT INFORMATION
  Report Type: 
  Country: None (occurrence: None)
  Receive Date: 20090810
  Receipt Date: 20090803
  Transmission Date: 20100115
  Serious: No
  Sender: FDA-Public Use
  Company Number: AU-ASTRAZENECA-2009SE07124

PATIENT
  Age: 35 Year
  Sex: Male

DRUGS (2)
  1. SEROQUEL [Suspect]
     Route: 048
  2. CLOZAPINE [Concomitant]
     Dates: start: 20090206

REACTIONS (1)
  - NEUTROPENIA [None]
